FAERS Safety Report 21667652 (Version 2)
Quarter: 2023Q1

REPORT INFORMATION
  Report Type: Spontaneous
  Country: JP (occurrence: JP)
  Receive Date: 20221201
  Receipt Date: 20230105
  Transmission Date: 20230418
  Serious: Yes (Other)
  Sender: FDA-Public Use
  Company Number: JP-CHUGAI-2022047784

PATIENT
  Age: 7 Decade
  Sex: Female

DRUGS (3)
  1. AVASTIN [Suspect]
     Active Substance: BEVACIZUMAB
     Indication: Hepatocellular carcinoma
     Dosage: ONCE/3WEEKS
     Route: 041
     Dates: start: 20220824
  2. AVASTIN [Suspect]
     Active Substance: BEVACIZUMAB
     Dosage: ONCE/3WEEKS
     Route: 041
     Dates: start: 20221228
  3. TECENTRIQ [Suspect]
     Active Substance: ATEZOLIZUMAB
     Indication: Hepatocellular carcinoma
     Dosage: ONCE/3WEEKS
     Route: 041
     Dates: start: 20220824

REACTIONS (1)
  - Mesenteric vein thrombosis [Recovering/Resolving]

NARRATIVE: CASE EVENT DATE: 20221026
